FAERS Safety Report 7077254-9 (Version None)
Quarter: 2010Q4

REPORT INFORMATION
  Report Type: 
  Country: None (occurrence: None)
  Receive Date: 20101101
  Receipt Date: 20101025
  Transmission Date: 20110411
  Serious: Yes (Death, Hospitalization, Other)
  Sender: FDA-Public Use
  Company Number: CA-ROCHE-737107

PATIENT
  Sex: Female

DRUGS (2)
  1. CAPECITABINE [Suspect]
     Indication: BREAST CANCER
     Route: 048
  2. BLINDED ENZASTAURIN [Suspect]
     Indication: BREAST CANCER
     Route: 048

REACTIONS (28)
  - BLOOD POTASSIUM DECREASED [None]
  - BLOOD SODIUM DECREASED [None]
  - DEATH [None]
  - DEHYDRATION [None]
  - DIARRHOEA [None]
  - DIZZINESS [None]
  - DYSPNOEA [None]
  - FATIGUE [None]
  - FEBRILE NEUTROPENIA [None]
  - HYPERTENSION [None]
  - LEUKOPENIA [None]
  - MUCOSAL INFLAMMATION [None]
  - MUSCULOSKELETAL PAIN [None]
  - NAUSEA [None]
  - NEUTROPHIL COUNT DECREASED [None]
  - OBESITY [None]
  - PAIN [None]
  - PALMAR-PLANTAR ERYTHRODYSAESTHESIA SYNDROME [None]
  - PLEURAL EFFUSION [None]
  - PNEUMONIA [None]
  - PORTAL VEIN THROMBOSIS [None]
  - PULMONARY EMBOLISM [None]
  - SEPSIS [None]
  - SEPTIC SHOCK [None]
  - SUDDEN DEATH [None]
  - THROMBOCYTOPENIA [None]
  - THROMBOSIS [None]
  - VOMITING [None]
